FAERS Safety Report 4294275-X (Version None)
Quarter: 2004Q1

REPORT INFORMATION
  Report Type: 
  Country: None (occurrence: None)
  Receive Date: 20040211
  Receipt Date: 20040126
  Transmission Date: 20041129
  Serious: Yes (Death, Hospitalization)
  Sender: FDA-Public Use
  Company Number: US_040199885

PATIENT
  Age: 73 Year
  Sex: Male
  Weight: 89 kg

DRUGS (6)
  1. TADALAFIL [Suspect]
     Indication: ERECTILE DYSFUNCTION
     Dosage: 20MG/AS NEEDED
     Dates: start: 20031101
  2. SILDENAFIL CITRATE [Suspect]
     Indication: ERECTILE DYSFUNCTION
     Dosage: 100MG/AS NEEDED
     Dates: start: 20031002, end: 20031031
  3. CLORANA (HYDROCHLOROTHIAZIDE) [Concomitant]
  4. TAMARINE [Concomitant]
  5. REPAGLINIDE [Concomitant]
  6. GINKGO BILOBA [Concomitant]

REACTIONS (2)
  - DRUG EFFECT DECREASED [None]
  - SUDDEN DEATH [None]
